FAERS Safety Report 17230273 (Version 7)
Quarter: 2020Q4

REPORT INFORMATION
  Report Type: Report from Study
  Country: None (occurrence: AU)
  Receive Date: 20200103
  Receipt Date: 20201112
  Transmission Date: 20210113
  Serious: Yes (Life-Threatening, Hospitalization)
  Sender: FDA-Public Use
  Company Number: AU-ABBVIE-19P-008-3214821-00

PATIENT
  Age: 32 Year
  Sex: Female
  Weight: 55.7 kg

DRUGS (33)
  1. VINCRISTINE [Suspect]
     Active Substance: VINCRISTINE
     Indication: ACUTE LYMPHOCYTIC LEUKAEMIA RECURRENT
     Route: 042
     Dates: start: 20191209, end: 20191209
  2. VINCRISTINE [Suspect]
     Active Substance: VINCRISTINE
     Route: 042
     Dates: start: 20191216, end: 20191216
  3. AMBISOME [Concomitant]
     Active Substance: AMPHOTERICIN B
     Route: 042
     Dates: start: 20191224, end: 20191227
  4. HIGH STRENGTH OMEGA 3 [Concomitant]
     Indication: ACUTE FATTY LIVER OF PREGNANCY
     Route: 048
     Dates: start: 20191220, end: 20200113
  5. AMILORIDE [Concomitant]
     Active Substance: AMILORIDE
     Indication: HYPOKALAEMIA
     Route: 048
     Dates: start: 20191227, end: 20191228
  6. SPAN K [Concomitant]
     Route: 048
     Dates: start: 20191224
  7. MAGMIN [Concomitant]
     Active Substance: MAGNESIUM ASPARTATE
     Indication: HYPOMAGNESAEMIA
     Route: 048
     Dates: start: 20191223, end: 20200106
  8. PANTOPRAZOLE [Concomitant]
     Active Substance: PANTOPRAZOLE
     Indication: GASTROOESOPHAGEAL REFLUX PROPHYLAXIS
     Route: 048
     Dates: start: 20191125
  9. AMBISOME [Concomitant]
     Active Substance: AMPHOTERICIN B
     Route: 042
     Dates: start: 20191220, end: 20191220
  10. MIDAZOLAM. [Concomitant]
     Active Substance: MIDAZOLAM
     Indication: PREMEDICATION
     Dosage: 1-5 MG
     Route: 042
     Dates: start: 20191126
  11. SODIBIC MOUTHWASH [Concomitant]
     Indication: PROPHYLAXIS
     Route: 061
     Dates: start: 20191208
  12. SPAN K [Concomitant]
     Indication: HYPOKALAEMIA
     Route: 048
     Dates: start: 20191223, end: 20191227
  13. ALLOPURINOL. [Concomitant]
     Active Substance: ALLOPURINOL
     Indication: PROPHYLAXIS
     Route: 048
     Dates: start: 20191208, end: 20191227
  14. FENTANYL. [Concomitant]
     Active Substance: FENTANYL
     Indication: ASPIRATION BONE MARROW
     Dosage: 25-100 UG
     Route: 042
     Dates: start: 20191126
  15. MAGNESIUM SULPHATE [Concomitant]
     Active Substance: MAGNESIUM SULFATE
     Indication: HYPOMAGNESAEMIA
     Route: 042
     Dates: start: 20191223, end: 20200106
  16. NORMAL SALINE [Concomitant]
     Active Substance: SODIUM CHLORIDE
     Indication: PROPHYLAXIS
     Route: 042
     Dates: start: 20191209, end: 20191211
  17. THROMBOTROL [Concomitant]
     Indication: ANTITHROMBIN III DEFICIENCY
     Dosage: 1000-2000 IU
     Route: 042
     Dates: start: 20191216, end: 20200111
  18. VENETOCLAX. [Suspect]
     Active Substance: VENETOCLAX
     Indication: ACUTE LYMPHOCYTIC LEUKAEMIA RECURRENT
     Route: 048
     Dates: start: 20191209, end: 20191209
  19. DEXAMETHASONE. [Suspect]
     Active Substance: DEXAMETHASONE
     Indication: ACUTE LYMPHOCYTIC LEUKAEMIA RECURRENT
     Route: 048
     Dates: start: 20191209, end: 20191213
  20. COLOXYL WITH SENNA [Concomitant]
     Active Substance: DOCUSATE SODIUM\SENNOSIDES A AND B
     Indication: CONSTIPATION
     Route: 048
     Dates: start: 20191103
  21. AMBISOME [Concomitant]
     Active Substance: AMPHOTERICIN B
     Indication: ANTIFUNGAL PROPHYLAXIS
     Route: 042
     Dates: start: 20191210, end: 20191216
  22. PARACETAMOL [Concomitant]
     Active Substance: ACETAMINOPHEN
     Indication: HEADACHE
     Route: 048
     Dates: start: 20191208
  23. PARACETAMOL [Concomitant]
     Active Substance: ACETAMINOPHEN
     Indication: PYREXIA
  24. VENETOCLAX. [Suspect]
     Active Substance: VENETOCLAX
     Route: 048
     Dates: start: 20191210, end: 20191228
  25. BACTRIM DS [Concomitant]
     Active Substance: SULFAMETHOXAZOLE\TRIMETHOPRIM
     Indication: ANTIFUNGAL PROPHYLAXIS
     Dosage: 800/160 MG; MONDAYS AND THURSDAYS
     Route: 048
     Dates: start: 20190829
  26. FENTANYL. [Concomitant]
     Active Substance: FENTANYL
     Indication: PREMEDICATION
  27. PEGASPARAGINASE [Suspect]
     Active Substance: PEGASPARGASE
     Indication: ACUTE LYMPHOCYTIC LEUKAEMIA RECURRENT
     Dosage: 1250 IU/M2
     Route: 042
     Dates: start: 20191209, end: 20191209
  28. ONDANSETRON [Concomitant]
     Active Substance: ONDANSETRON
     Indication: NAUSEA
     Dosage: 4-8 MG
     Route: 048
     Dates: start: 20191209
  29. VALTREX [Concomitant]
     Active Substance: VALACYCLOVIR HYDROCHLORIDE
     Indication: ANTIVIRAL PROPHYLAXIS
     Route: 048
     Dates: start: 20190829
  30. FENOFIBRATE. [Concomitant]
     Active Substance: FENOFIBRATE
     Indication: ACUTE FATTY LIVER OF PREGNANCY
     Route: 048
     Dates: start: 20191220, end: 20200113
  31. NIZATIDINE. [Concomitant]
     Active Substance: NIZATIDINE
     Indication: GASTROOESOPHAGEAL REFLUX DISEASE
     Route: 048
     Dates: start: 20191212, end: 20191227
  32. ABT-263 [Suspect]
     Active Substance: NAVITOCLAX
     Indication: ACUTE LYMPHOCYTIC LEUKAEMIA RECURRENT
     Route: 048
     Dates: start: 20191211, end: 20191228
  33. CHOLECALCIFEROL [Concomitant]
     Active Substance: CHOLECALCIFEROL
     Indication: OSTEOPOROSIS PROPHYLAXIS
     Dosage: 1-2 TABLETS
     Route: 048
     Dates: start: 20190829

REACTIONS (2)
  - Neutropenic sepsis [Recovered/Resolved]
  - Escherichia sepsis [Recovered/Resolved]

NARRATIVE: CASE EVENT DATE: 20191228
